FAERS Safety Report 12422848 (Version 1)
Quarter: 2016Q2

REPORT INFORMATION
  Report Type: Spontaneous
  Country: IR (occurrence: IR)
  Receive Date: 20160601
  Receipt Date: 20160601
  Transmission Date: 20160815
  Serious: Yes (Other)
  Sender: FDA-Public Use
  Company Number: IR-CIPLA LTD.-2016IR06014

PATIENT

DRUGS (4)
  1. VITAMIN B6 [Suspect]
     Active Substance: PYRIDOXINE HYDROCHLORIDE
     Dosage: UNK
     Route: 065
  2. FOLIC ACID. [Suspect]
     Active Substance: FOLIC ACID
     Dosage: 0.5 MG/DAY
     Route: 065
  3. CALCIUM [Suspect]
     Active Substance: CALCIUM
     Dosage: 1 G, UNK DAILY FROM WEEK 14
     Route: 065
  4. FERROUS SULFATE. [Suspect]
     Active Substance: FERROUS SULFATE
     Dosage: 60 MG, UNK DAILY FROM WEEK 14
     Route: 065

REACTIONS (2)
  - Exposure during pregnancy [Unknown]
  - Gestational hypertension [Unknown]
